FAERS Safety Report 4746516-X (Version None)
Quarter: 2005Q3

REPORT INFORMATION
  Report Type: 
  Country: None (occurrence: None)
  Receive Date: 20050816
  Receipt Date: 20050816
  Transmission Date: 20060218
  Serious: Yes (Other)
  Sender: FDA-Public Use
  Company Number: None

PATIENT
  Age: 39 Year
  Sex: Female
  Weight: 90.7194 kg

DRUGS (10)
  1. BOTOX A (BOTULINUM TYPE A)-ALLERGAN PHARMACEUTICALS [Suspect]
     Indication: HEADACHE
     Dosage: SEE IMAGE
     Dates: start: 20031101
  2. BOTOX A (BOTULINUM TYPE A)-ALLERGAN PHARMACEUTICALS [Suspect]
     Indication: TORTICOLLIS
     Dosage: SEE IMAGE
     Dates: start: 20031101
  3. BOTOX A (BOTULINUM TYPE A)-ALLERGAN PHARMACEUTICALS [Suspect]
     Indication: HEADACHE
     Dosage: SEE IMAGE
     Dates: start: 20040401
  4. BOTOX A (BOTULINUM TYPE A)-ALLERGAN PHARMACEUTICALS [Suspect]
     Indication: TORTICOLLIS
     Dosage: SEE IMAGE
     Dates: start: 20040401
  5. VALTREX [Concomitant]
  6. TOPROL-XL [Concomitant]
  7. DOXYCYCLINE [Concomitant]
  8. TOPAMAX [Concomitant]
  9. PERCOCET [Concomitant]
  10. NEURONTIN [Concomitant]

REACTIONS (5)
  - ARTHRALGIA [None]
  - BURNING SENSATION [None]
  - HYPOAESTHESIA [None]
  - NEUROPATHIC PAIN [None]
  - PAIN IN EXTREMITY [None]
